FAERS Safety Report 16941815 (Version 1)
Quarter: 2019Q4

REPORT INFORMATION
  Report Type: Spontaneous
  Country: US (occurrence: US)
  Receive Date: 20190829
  Receipt Date: 20190829
  Transmission Date: 20200122
  Serious: Yes (Other)
  Sender: FDA-Public Use
  Company Number: None

PATIENT
  Age: 26 Year
  Sex: Female
  Weight: 76.66 kg

DRUGS (1)
  1. NEXPLANON [Suspect]
     Active Substance: ETONOGESTREL
     Indication: CONTRACEPTION
     Dates: start: 20150201, end: 20160201

REACTIONS (5)
  - Menstruation irregular [None]
  - Pelvic pain [None]
  - Fibrosis [None]
  - Polycystic ovaries [None]
  - Implant site scar [None]

NARRATIVE: CASE EVENT DATE: 20160101
